FAERS Safety Report 9263551 (Version 1)
Quarter: 2013Q2

REPORT INFORMATION
  Report Type: Spontaneous
  Country: US (occurrence: US)
  Receive Date: 20130430
  Receipt Date: 20130430
  Transmission Date: 20140414
  Serious: Yes (Hospitalization)
  Sender: FDA-Public Use
  Company Number: US-BAYER-2013-051973

PATIENT
  Age: 47 Year
  Sex: Female
  Weight: 72.2 kg

DRUGS (3)
  1. YAZ [Suspect]
     Indication: PREMENSTRUAL SYNDROME
  2. ZOCOR [Concomitant]
     Dosage: 20 MG, UNK
     Route: 048
  3. IBUPROFEN [Concomitant]
     Indication: PAIN

REACTIONS (1)
  - Deep vein thrombosis [Recovering/Resolving]
